FAERS Safety Report 6820813-6 (Version None)
Quarter: 2010Q3

REPORT INFORMATION
  Report Type: 
  Country: None (occurrence: None)
  Receive Date: 20100707
  Receipt Date: 20100630
  Transmission Date: 20110219
  Serious: Yes (Death)
  Sender: FDA-Public Use
  Company Number: US-AMGEN-QUU421567

PATIENT
  Sex: Female

DRUGS (3)
  1. NPLATE [Suspect]
     Indication: IDIOPATHIC THROMBOCYTOPENIC PURPURA
     Dates: start: 20100121, end: 20100218
  2. CYCLOPHOSPHAMIDE [Concomitant]
     Dates: start: 20091227
  3. DANAZOL [Concomitant]
     Dates: start: 20060101

REACTIONS (1)
  - CARDIAC ARREST [None]
